FAERS Safety Report 18679754 (Version 3)
Quarter: 2025Q4

REPORT INFORMATION
  Report Type: Spontaneous
  Country: EU (occurrence: EU)
  Receive Date: 20201230
  Receipt Date: 20251202
  Transmission Date: 20260119
  Serious: Yes (Other)
  Sender: AUROBINDO
  Company Number: EU-AUROBINDO-AUR-APL-2020-063226

PATIENT
  Age: 93 Year
  Sex: Male

DRUGS (4)
  1. CEFUROXIME [Suspect]
     Active Substance: CEFUROXIME
     Indication: Antibiotic therapy
     Dosage: UNK
  2. CEFUROXIME [Suspect]
     Active Substance: CEFUROXIME
     Indication: Cellulitis
  3. CLINDAMYCIN [Suspect]
     Active Substance: CLINDAMYCIN
     Indication: Antibiotic therapy
     Dosage: UNK
  4. CLINDAMYCIN [Suspect]
     Active Substance: CLINDAMYCIN
     Indication: Cellulitis

REACTIONS (2)
  - Rash maculo-papular [Recovering/Resolving]
  - Type IV hypersensitivity reaction [Recovered/Resolved]
